FAERS Safety Report 15467061 (Version 3)
Quarter: 2018Q4

REPORT INFORMATION
  Report Type: Spontaneous
  Country: ES (occurrence: ES)
  Receive Date: 20181005
  Receipt Date: 20181106
  Transmission Date: 20190204
  Serious: Yes (Other)
  Sender: FDA-Public Use
  Company Number: ES-ASTELLAS-2018US042584

PATIENT
  Age: 58 Year
  Sex: Male

DRUGS (3)
  1. BICALUTAMIDE. [Concomitant]
     Active Substance: BICALUTAMIDE
     Indication: PROSTATE CANCER
     Dosage: 50 X 10 DAYS P
     Route: 065
  2. XTANDI [Suspect]
     Active Substance: ENZALUTAMIDE
     Indication: HORMONE-REFRACTORY PROSTATE CANCER
     Dosage: 160 MG (4 CAPSULES OF 40 MG), ONCE DAILY
     Route: 048
     Dates: start: 20170208
  3. ELIGARD [Suspect]
     Active Substance: LEUPROLIDE ACETATE
     Indication: PROSTATE CANCER
     Dosage: 1 VIAL, EVERY 6 MONTHS
     Route: 058
     Dates: start: 20140731

REACTIONS (6)
  - Rib fracture [Unknown]
  - Prostatic specific antigen increased [Unknown]
  - Groin pain [Unknown]
  - Pain [Unknown]
  - Fall [Unknown]
  - Metastases to bone [Unknown]

NARRATIVE: CASE EVENT DATE: 20140123
